FAERS Safety Report 7077227-6 (Version None)
Quarter: 2010Q4

REPORT INFORMATION
  Report Type: 
  Country: None (occurrence: None)
  Receive Date: 20101101
  Receipt Date: 20101020
  Transmission Date: 20110411
  Serious: Yes (Hospitalization)
  Sender: FDA-Public Use
  Company Number: US-ELI_LILLY_AND_COMPANY-US201010005220

PATIENT
  Sex: Female
  Weight: 91.61 kg

DRUGS (8)
  1. PEMETREXED [Suspect]
     Indication: NON-SMALL CELL LUNG CANCER STAGE IV
     Dosage: 500 MG/M2, OTHER
     Route: 042
     Dates: start: 20100113
  2. CARBOPLATIN [Suspect]
     Indication: NON-SMALL CELL LUNG CANCER STAGE IV
     Dosage: 6 D/F, OTHER
     Route: 042
     Dates: start: 20100113, end: 20100317
  3. BEVACIZUMAB [Suspect]
     Indication: NON-SMALL CELL LUNG CANCER STAGE IV
     Dosage: 15 MG/KG, OTHER
     Route: 042
     Dates: start: 20100113
  4. FOLIC ACID [Concomitant]
     Indication: PREMEDICATION
     Dates: start: 20091230
  5. HYDROCHLOROTHIAZIDE [Concomitant]
     Indication: HYPERTENSION
     Dosage: UNK, UNK
     Dates: start: 20070101, end: 20101013
  6. SIMVASTATIN [Concomitant]
     Indication: HYPERCHOLESTEROLAEMIA
     Dates: start: 20080101
  7. ZYRTEC [Concomitant]
     Indication: RHINITIS ALLERGIC
     Dates: start: 20100324
  8. EXFORGE [Concomitant]
     Indication: HYPERTENSION
     Dates: start: 20070101

REACTIONS (2)
  - FATIGUE [None]
  - PULMONARY EMBOLISM [None]
